FAERS Safety Report 11863527 (Version 1)
Quarter: 2015Q4

REPORT INFORMATION
  Report Type: Other
  Country: GB (occurrence: GB)
  Receive Date: 20151223
  Receipt Date: 20151223
  Transmission Date: 20160305
  Serious: Yes (Hospitalization)
  Sender: FDA-Public Use
  Company Number: GB-MYLANLABS-2015M1041187

PATIENT

DRUGS (9)
  1. FUROSEMIDE. [Concomitant]
     Active Substance: FUROSEMIDE
     Dosage: UNK
  2. SIMVASTATIN. [Concomitant]
     Active Substance: SIMVASTATIN
     Dosage: UNK
  3. COCODAMOL [Concomitant]
     Active Substance: ACETAMINOPHEN\CODEINE PHOSPHATE
     Dosage: UNK (PREVIOUSLY TAKEN 30/500 COCODOMOL FOR SOME WEEKS, STOPPED TAKING SHORTLY AFTER STARTING GABAPE)
  4. NICORANDIL [Concomitant]
     Active Substance: NICORANDIL
     Dosage: UNK
  5. ASPIRIN                            /00002701/ [Concomitant]
     Active Substance: ASPIRIN
     Dosage: UNK
  6. LOSARTAN. [Concomitant]
     Active Substance: LOSARTAN
     Dosage: UNK
  7. OMEPRAZOLE. [Concomitant]
     Active Substance: OMEPRAZOLE
     Dosage: UNK
  8. GABAPENTIN. [Suspect]
     Active Substance: GABAPENTIN
     Indication: NEURALGIA
     Dosage: 100 MG, TID (AT LEAST 2 HOURS BEFORE OR AFTER OMAPRAZOLE)
     Route: 048
     Dates: start: 20151026, end: 20151101
  9. GABAPENTIN. [Suspect]
     Active Substance: GABAPENTIN
     Dosage: 400 MG, UNK (100MG X 2 PLUS 200MG X 1 DAILY. AT LEAST 2 HOURS BEFORE OR AFTER OMAPRAZOLE)
     Route: 048
     Dates: start: 20151102, end: 20151104

REACTIONS (6)
  - Hypoaesthesia [Recovered/Resolved]
  - Heart rate increased [Recovered/Resolved]
  - Abdominal pain upper [Recovered/Resolved]
  - Night sweats [Recovered/Resolved]
  - Restless legs syndrome [Recovered/Resolved]
  - Agitation [Recovered/Resolved]

NARRATIVE: CASE EVENT DATE: 20151027
